FAERS Safety Report 20289559 (Version 1)
Quarter: 2022Q1

REPORT INFORMATION
  Report Type: Report from Study
  Country: US (occurrence: US)
  Receive Date: 20220104
  Receipt Date: 20220104
  Transmission Date: 20220423
  Serious: Yes (Death)
  Sender: FDA-Public Use
  Company Number: US-TAKEDA-2022TUS000248

PATIENT
  Sex: Female

DRUGS (2)
  1. ICATIBANT [Suspect]
     Active Substance: ICATIBANT ACETATE
     Indication: Product used for unknown indication
     Dosage: UNK, PRN
     Route: 058
     Dates: start: 20171107
  2. ICATIBANT [Suspect]
     Active Substance: ICATIBANT ACETATE
     Indication: Product used for unknown indication
     Dosage: UNK, PRN
     Route: 058
     Dates: start: 20171107

REACTIONS (1)
  - COVID-19 [Fatal]
